FAERS Safety Report 21765609 (Version 2)
Quarter: 2022Q4

REPORT INFORMATION
  Report Type: Spontaneous
  Country: FR (occurrence: None)
  Receive Date: 20221222
  Receipt Date: 20221230
  Transmission Date: 20230113
  Serious: Yes (Other)
  Sender: FDA-Public Use
  Company Number: 2022A411207

PATIENT
  Sex: Female

DRUGS (5)
  1. DAPAGLIFLOZIN [Suspect]
     Active Substance: DAPAGLIFLOZIN
     Indication: Type 2 diabetes mellitus
     Route: 048
  2. TRESIBA [Concomitant]
     Active Substance: INSULIN DEGLUDEC
     Route: 065
  3. FAST INSULIN [Concomitant]
     Dosage: (SLOW INSULIN)
     Route: 065
  4. OXAZEPAM [Concomitant]
     Active Substance: OXAZEPAM
     Dosage: 50 MG
     Route: 065
  5. OMEPRAZOLE [Concomitant]
     Active Substance: OMEPRAZOLE
     Dosage: 20 MG
     Route: 065

REACTIONS (4)
  - Staphylococcal infection [Unknown]
  - Diabetic ketoacidosis [Unknown]
  - Abdominal pain upper [Unknown]
  - Vulvovaginal mycotic infection [Unknown]
